FAERS Safety Report 4300187-5 (Version None)
Quarter: 2004Q1

REPORT INFORMATION
  Report Type: 
  Country: None (occurrence: None)
  Receive Date: 20040218
  Receipt Date: 20040205
  Transmission Date: 20041129
  Serious: Yes (Hospitalization)
  Sender: FDA-Public Use
  Company Number: 2004008216

PATIENT
  Age: 70 Year
  Sex: Male

DRUGS (5)
  1. LIPITOR [Suspect]
     Indication: METABOLIC DISORDER
     Dosage: 10 MG (DAILY), ORAL
     Route: 048
     Dates: end: 20030218
  2. QUINAPRIL HCL [Concomitant]
  3. AMLODIPINE BESYLATE [Concomitant]
  4. QUININE SULFATE (QUININE SULFATE) [Concomitant]
  5. ACETYLSALICYLIC ACID SRT [Concomitant]

REACTIONS (2)
  - FALL [None]
  - RHABDOMYOLYSIS [None]
